FAERS Safety Report 8674124 (Version 3)
Quarter: 2012Q4

REPORT INFORMATION
  Report Type: Report from Study
  Country: CA (occurrence: CA)
  Receive Date: 20120719
  Receipt Date: 20121211
  Transmission Date: 20130627
  Serious: Yes (Other)
  Sender: FDA-Public Use
  Company Number: CA-JNJFOC-20120707223

PATIENT
  Sex: Female
  Weight: 127 kg

DRUGS (11)
  1. STELARA [Suspect]
     Indication: PSORIASIS
     Route: 058
     Dates: start: 20111026, end: 20120516
  2. SYNTHROID [Concomitant]
  3. PANTOLOC [Concomitant]
  4. NAPROXEN [Concomitant]
  5. APO HYDRO [Concomitant]
  6. XALATAN [Concomitant]
  7. CITALOPRAM [Concomitant]
  8. ATACAND [Concomitant]
  9. FOLIC ACID [Concomitant]
  10. PENNSAID [Concomitant]
  11. METHOTREXATE [Concomitant]

REACTIONS (1)
  - Retinal detachment [Not Recovered/Not Resolved]
